FAERS Safety Report 8768259 (Version 1)
Quarter: 2012Q4

REPORT INFORMATION
  Report Type: 
  Country: US (occurrence: US)
  Receive Date: 20120904
  Receipt Date: 20120904
  Transmission Date: 20130627
  Serious: No
  Sender: FDA-Public Use
  Company Number: US-AMGEN-USASP2012052649

PATIENT
  Age: 8 Year
  Sex: Female
  Weight: 53 kg

DRUGS (3)
  1. ENBREL [Suspect]
     Indication: RHEUMATOID ARTHRITIS
     Dosage: 25 mg, qwk
     Route: 058
     Dates: start: 20120713
  2. MELOXICAM [Concomitant]
     Indication: JUVENILE ARTHRITIS
     Dosage: 7.5 mg, qd
     Route: 048
     Dates: start: 20120711
  3. METHOTREXATE [Concomitant]
     Indication: JUVENILE ARTHRITIS
     Dosage: 10 mg, qwk
     Dates: start: 20090519

REACTIONS (1)
  - Injection site pain [Not Recovered/Not Resolved]
